FAERS Safety Report 25148477 (Version 2)
Quarter: 2025Q2

REPORT INFORMATION
  Report Type: Spontaneous
  Country: US (occurrence: US)
  Receive Date: 20250402
  Receipt Date: 20250402
  Transmission Date: 20250716
  Serious: No
  Sender: JOHNSON AND JOHNSON
  Company Number: US-JNJFOC-20250231094

PATIENT
  Sex: Female

DRUGS (11)
  1. TOPAMAX [Suspect]
     Active Substance: TOPIRAMATE
     Indication: Migraine
  2. OCREVUS [Concomitant]
     Active Substance: OCRELIZUMAB
  3. AMPYRA [Concomitant]
     Active Substance: DALFAMPRIDINE
  4. COPAXONE [Concomitant]
     Active Substance: GLATIRAMER ACETATE
  5. ZOVIRAX [Concomitant]
     Active Substance: ACYCLOVIR
  6. NEURONTIN [Concomitant]
     Active Substance: GABAPENTIN
  7. LASIX [Concomitant]
     Active Substance: FUROSEMIDE
  8. ZETIA [Concomitant]
     Active Substance: EZETIMIBE
  9. GONADOTROPHIN, CHORIONIC [Concomitant]
     Active Substance: GONADOTROPHIN, CHORIONIC
  10. LYRICA [Concomitant]
     Active Substance: PREGABALIN
  11. IMURAN [Concomitant]
     Active Substance: AZATHIOPRINE

REACTIONS (2)
  - Migraine [Not Recovered/Not Resolved]
  - Drug ineffective [Unknown]
